FAERS Safety Report 9596140 (Version 2)
Quarter: 2013Q4

REPORT INFORMATION
  Report Type: Spontaneous
  Country: GB (occurrence: GB)
  Receive Date: 20131004
  Receipt Date: 20131004
  Transmission Date: 20140711
  Serious: Yes (Life-Threatening, Hospitalization)
  Sender: FDA-Public Use
  Company Number: GB-ASTRAZENECA-2013SE66323

PATIENT
  Age: 63 Year
  Sex: Male

DRUGS (3)
  1. PROPOFOL [Suspect]
     Indication: ANAESTHESIA
     Route: 042
     Dates: start: 20130729, end: 20130729
  2. BENDROFLUMETHIAZIDE [Concomitant]
     Indication: HYPERTENSION
  3. RAMIPRIL [Concomitant]
     Indication: HYPERTENSION

REACTIONS (2)
  - Ventricular fibrillation [Recovered/Resolved]
  - Cardiac arrest [Recovered/Resolved]
